FAERS Safety Report 6058316-1 (Version None)
Quarter: 2009Q1

REPORT INFORMATION
  Report Type: 
  Country: None (occurrence: None)
  Receive Date: 20090122
  Receipt Date: 20090119
  Transmission Date: 20090719
  Serious: Yes (Hospitalization, Other)
  Sender: FDA-Public Use
  Company Number: THYM-1000844

PATIENT
  Age: 56 Year
  Sex: Female

DRUGS (2)
  1. THYMOGLOBULIN [Suspect]
     Indication: BONE MARROW CONDITIONING REGIMEN
     Dosage: 135 MG, INTRAVENOUS
     Route: 042
     Dates: start: 20081117, end: 20081118
  2. FLUDARABINE PHOSPHATE [Concomitant]

REACTIONS (2)
  - HEADACHE [None]
  - SUBARACHNOID HAEMORRHAGE [None]
